FAERS Safety Report 8020372 (Version 4)
Quarter: 2013Q2

REPORT INFORMATION
  Report Type: Spontaneous
  Country: US (occurrence: US)
  Receive Date: 20110705
  Receipt Date: 20130610
  Transmission Date: 20140414
  Serious: Yes (Other)
  Sender: FDA-Public Use
  Company Number: US-PFIZER INC-2011144104

PATIENT
  Age: 25 Year
  Sex: Female
  Weight: 65.8 kg

DRUGS (5)
  1. DEPO-PROVERA [Suspect]
     Indication: CONTRACEPTION
     Dosage: UNK
     Dates: start: 20030401
  2. DEPO-PROVERA [Suspect]
     Dosage: UNK
  3. DEPO-PROVERA [Suspect]
     Dosage: UNK
  4. DEPO-PROVERA [Suspect]
     Dosage: UNK
     Dates: end: 2007
  5. DEPO-PROVERA [Suspect]
     Dosage: UNK
     Dates: start: 20090808

REACTIONS (11)
  - Osteoporosis [Unknown]
  - Cardiac disorder [Unknown]
  - Spinal column injury [Unknown]
  - Spinal osteoarthritis [Unknown]
  - Spinal deformity [Unknown]
  - Bone density decreased [Unknown]
  - Osteosclerosis [Unknown]
  - Muscle contracture [Unknown]
  - Heart rate increased [Unknown]
  - Weight increased [Unknown]
  - Pain [Unknown]
